FAERS Safety Report 14664054 (Version 1)
Quarter: 2018Q1

REPORT INFORMATION
  Report Type: Spontaneous
  Country: US (occurrence: US)
  Receive Date: 20180321
  Receipt Date: 20180321
  Transmission Date: 20180509
  Serious: No
  Sender: FDA-Public Use
  Company Number: US-AAA-201700133

PATIENT
  Age: 61 Year
  Sex: Female
  Weight: 80.3 kg

DRUGS (1)
  1. NETSPOT [Suspect]
     Active Substance: DOTATATE GALLIUM GA-68
     Indication: POSITRON EMISSION TOMOGRAM
     Dosage: NUMBER OF SEPARATE DOSAGES: 1
     Route: 042
     Dates: start: 20170512, end: 20170512

REACTIONS (1)
  - Scan gallium abnormal [Recovered/Resolved]

NARRATIVE: CASE EVENT DATE: 20170512
